FAERS Safety Report 8774178 (Version 1)
Quarter: 2012Q4

REPORT INFORMATION
  Report Type: 
  Country: US (occurrence: US)
  Receive Date: 20120907
  Receipt Date: 20120907
  Transmission Date: 20130627
  Serious: No
  Sender: FDA-Public Use
  Company Number: US-009507513-1209USA001522

PATIENT

DRUGS (3)
  1. JANUVIA [Suspect]
     Dosage: 2 DF, qd
     Route: 048
  2. GLIMEPIRIDE [Suspect]
  3. METFORMIN [Suspect]

REACTIONS (2)
  - Blood glucose increased [Recovered/Resolved]
  - Drug ineffective [Unknown]
